FAERS Safety Report 21634696 (Version 1)
Quarter: 2022Q4

REPORT INFORMATION
  Report Type: Spontaneous
  Country: US (occurrence: None)
  Receive Date: 20221123
  Receipt Date: 20221123
  Transmission Date: 20230113
  Serious: Yes (Other)
  Sender: FDA-Public Use
  Company Number: None

PATIENT
  Age: 32 Year
  Sex: 0

DRUGS (3)
  1. BUPRENORPHINE HYDROCHLORIDE\NALOXONE HYDROCHLORIDE [Suspect]
     Active Substance: BUPRENORPHINE HYDROCHLORIDE\NALOXONE HYDROCHLORIDE
     Indication: Drug use disorder
     Dosage: FREQUENCY : DAILY;?
     Route: 060
     Dates: start: 20190417
  2. BUPRENORPHINE HYDROCHLORIDE\NALOXONE HYDROCHLORIDE [Suspect]
     Active Substance: BUPRENORPHINE HYDROCHLORIDE\NALOXONE HYDROCHLORIDE
     Indication: Dependence
  3. Buprenorphine HCL Naloxone [Concomitant]
     Dates: start: 20190409

REACTIONS (4)
  - Abdominal discomfort [None]
  - Constipation [None]
  - Product substitution issue [None]
  - Product formulation issue [None]

NARRATIVE: CASE EVENT DATE: 20200414
